FAERS Safety Report 10062183 (Version 1)
Quarter: 2014Q1

REPORT INFORMATION
  Report Type: Spontaneous
  Country: US (occurrence: None)
  Receive Date: 20140312
  Receipt Date: 20140312
  Transmission Date: 20141002
  Serious: Yes (Other)
  Sender: FDA-Public Use
  Company Number: 1000050243

PATIENT
  Age: 49 Year
  Sex: Female
  Weight: 150 kg

DRUGS (12)
  1. SAVELLA (MILNACIPRAN HYDROCHLORIDE) (12.5 MILLIGRAM, TABLETS) [Suspect]
     Indication: PAIN
     Route: 048
     Dates: start: 20130327, end: 20130327
  2. SAVELLA (MILNACIPRAN HYDROCHLORIDE) (50 MILLIGRAM, TABLETS) [Suspect]
     Indication: PAIN
     Dosage: 100 MG (50 MG, 2 IN 1 D)
     Route: 048
     Dates: start: 20110404, end: 201310
  3. FISH OIL (FISH OIL) (FISH OIL) [Concomitant]
  4. MVI (VITAMINS NOS) (VITAMINS NOS) [Concomitant]
  5. CALCIUM WITH VITAMIN D (CALCIUM, VITAMIN D) (CALCIUM, VITAMIN D) [Concomitant]
  6. ASPIRIN (ACETYLSALICYLIC ACID) (ACETYLSALICYLIC ACID) [Concomitant]
  7. DICYCLOMINE (DICYCLOMINE) (DICYCLOMINE) [Concomitant]
  8. CYMBALTA [Concomitant]
  9. AMLODIPINE (AMLODIPINE) (AMLODIPINE) [Concomitant]
  10. VENLAFAXINE (VENLAFAXINE) (VENLAFAXINE) [Concomitant]
  11. MEDROXYPROGESTERONE (MEDROXYPROGESTERONE) (MEDROXYPROGESTERONE) [Concomitant]
  12. ESTRADIOL (ESTRADIOL) (ESTRADIOL) [Concomitant]

REACTIONS (4)
  - Suicidal ideation [None]
  - Depression [None]
  - Pain [None]
  - Off label use [None]
